FAERS Safety Report 15319660 (Version 1)
Quarter: 2018Q3

REPORT INFORMATION
  Report Type: Spontaneous
  Country: GB (occurrence: GB)
  Receive Date: 20180827
  Receipt Date: 20180827
  Transmission Date: 20181010
  Serious: Yes (Hospitalization, Disabling, Other)
  Sender: FDA-Public Use
  Company Number: GB-TEVA-2018-GB-947070

PATIENT
  Age: 33 Year
  Sex: Female
  Weight: 114.3 kg

DRUGS (6)
  1. BISOPROLOL FUMARATE. [Concomitant]
     Active Substance: BISOPROLOL FUMARATE
     Dosage: 2.5 MILLIGRAM DAILY;
  2. IRBESARTAN. [Concomitant]
     Active Substance: IRBESARTAN
     Dosage: 100 MILLIGRAM DAILY;
  3. AMITRIPTYLINE [Concomitant]
     Active Substance: AMITRIPTYLINE
     Dosage: 75 MILLIGRAM DAILY;
  4. PREGABALIN. [Concomitant]
     Active Substance: PREGABALIN
     Dosage: 150MG ONCE OR TWICE DAILY
  5. OXYCODONE HYDROCHLORIDE. [Suspect]
     Active Substance: OXYCODONE HYDROCHLORIDE
     Indication: ANALGESIC THERAPY
     Dosage: 40 MILLIGRAM DAILY;
     Route: 048
     Dates: start: 201109
  6. ALLOPURINOL. [Concomitant]
     Active Substance: ALLOPURINOL
     Dosage: 100 MILLIGRAM DAILY;

REACTIONS (3)
  - Nerve injury [Not Recovered/Not Resolved]
  - Diverticulitis [Not Recovered/Not Resolved]
  - Facial paralysis [Not Recovered/Not Resolved]

NARRATIVE: CASE EVENT DATE: 2015
